FAERS Safety Report 25484953 (Version 1)
Quarter: 2025Q2

REPORT INFORMATION
  Report Type: Spontaneous
  Country: CN (occurrence: CN)
  Receive Date: 20250626
  Receipt Date: 20250626
  Transmission Date: 20250716
  Serious: Yes (Hospitalization, Other)
  Sender: RANBAXY
  Company Number: CN-SUN PHARMACEUTICAL INDUSTRIES LTD-2025R1-513548

PATIENT
  Age: 64 Year
  Sex: Female

DRUGS (3)
  1. MAGNESIUM SULFATE [Suspect]
     Active Substance: MAGNESIUM SULFATE
     Indication: Blister
     Route: 065
  2. MEPERIDINE [Suspect]
     Active Substance: MEPERIDINE
     Indication: Pain in extremity
     Route: 065
  3. DEXAMETHASONE [Suspect]
     Active Substance: DEXAMETHASONE
     Indication: Pain in extremity
     Route: 042

REACTIONS (1)
  - Therapy non-responder [Unknown]
